FAERS Safety Report 24913936 (Version 1)
Quarter: 2025Q1

REPORT INFORMATION
  Report Type: Spontaneous
  Country: US (occurrence: US)
  Receive Date: 20250202
  Receipt Date: 20250202
  Transmission Date: 20250409
  Serious: No
  Sender: ROCHE
  Company Number: US-ROCHE-10000197098

PATIENT
  Sex: Male

DRUGS (2)
  1. RITUXIMAB [Suspect]
     Active Substance: RITUXIMAB
     Indication: Product used for unknown indication
     Route: 040
  2. DIMETHYLTRYPTAMINE [Concomitant]
     Active Substance: DIMETHYLTRYPTAMINE
     Indication: Relapsing multiple sclerosis

REACTIONS (2)
  - Off label use [Unknown]
  - No adverse event [Unknown]
